FAERS Safety Report 16351485 (Version 1)
Quarter: 2019Q2

REPORT INFORMATION
  Report Type: Spontaneous
  Country: CN (occurrence: CN)
  Receive Date: 20190524
  Receipt Date: 20190524
  Transmission Date: 20190711
  Serious: Yes (Other)
  Sender: FDA-Public Use
  Company Number: CN-ROCHE-2317703

PATIENT
  Age: 47 Year
  Sex: Female

DRUGS (11)
  1. GIMERACIL;OTERACIL POTASSIUM;TEGAFUR [Concomitant]
     Active Substance: GIMERACIL\OTERACIL\TEGAFUR
     Route: 065
     Dates: start: 20170119
  2. FLUOROURACIL. [Concomitant]
     Active Substance: FLUOROURACIL
     Route: 065
     Dates: start: 20160905
  3. RALTITREXED [Concomitant]
     Active Substance: RALTITREXED
     Route: 065
     Dates: start: 20170701
  4. IRINOTECAN [Concomitant]
     Active Substance: IRINOTECAN
     Dosage: DAY1 DAY8
     Route: 065
  5. CALCIUM FOLINATE [Concomitant]
     Active Substance: LEUCOVORIN CALCIUM
     Route: 065
     Dates: start: 20160905
  6. CISPLATIN. [Concomitant]
     Active Substance: CISPLATIN
     Route: 065
  7. XELODA [Suspect]
     Active Substance: CAPECITABINE
     Indication: COLON CANCER METASTATIC
     Route: 048
     Dates: start: 20160801
  8. IRINOTECAN [Concomitant]
     Active Substance: IRINOTECAN
     Route: 065
     Dates: start: 20170119
  9. IRINOTECAN [Concomitant]
     Active Substance: IRINOTECAN
     Route: 065
     Dates: start: 20160905
  10. GIMERACIL;OTERACIL POTASSIUM;TEGAFUR [Concomitant]
     Active Substance: GIMERACIL\OTERACIL\TEGAFUR
     Dosage: 14 DAY
     Route: 065
     Dates: start: 20180105
  11. CETUXIMAB. [Concomitant]
     Active Substance: CETUXIMAB
     Route: 065
     Dates: start: 20170701

REACTIONS (7)
  - Decreased appetite [Unknown]
  - Pleural effusion [Unknown]
  - Pelvic fluid collection [Unknown]
  - Pericardial effusion [Recovering/Resolving]
  - Cough [Unknown]
  - Abdominal distension [Unknown]
  - Ascites [Unknown]

NARRATIVE: CASE EVENT DATE: 201707
